FAERS Safety Report 16078794 (Version 1)
Quarter: 2019Q1

REPORT INFORMATION
  Report Type: Spontaneous
  Country: US (occurrence: US)
  Receive Date: 20190315
  Receipt Date: 20190315
  Transmission Date: 20190418
  Serious: No
  Sender: FDA-Public Use
  Company Number: US-PERRIGO-18US001927

PATIENT
  Age: 35 Year
  Sex: Female
  Weight: 58.05 kg

DRUGS (1)
  1. SCOPOLAMINE [Suspect]
     Active Substance: SCOPOLAMINE
     Indication: MOTION SICKNESS
     Dosage: UNKNOWN, SINGLE
     Route: 062
     Dates: start: 20171222, end: 20171223

REACTIONS (8)
  - Dry mouth [Recovered/Resolved]
  - Dysuria [Recovered/Resolved]
  - Nausea [Recovered/Resolved]
  - Disorientation [Recovered/Resolved]
  - Confusional state [Recovered/Resolved]
  - Speech disorder [Recovered/Resolved]
  - Mydriasis [Recovered/Resolved]
  - Throat tightness [Recovered/Resolved]

NARRATIVE: CASE EVENT DATE: 20171223
